FAERS Safety Report 17296617 (Version 2)
Quarter: 2022Q2

REPORT INFORMATION
  Report Type: Spontaneous
  Country: CA (occurrence: CA)
  Receive Date: 20200121
  Receipt Date: 20220408
  Transmission Date: 20220721
  Serious: Yes (Disabling)
  Sender: FDA-Public Use
  Company Number: None

PATIENT
  Sex: Male
  Weight: 89 kg

DRUGS (1)
  1. ESCITALOPRAM OXALATE [Suspect]
     Active Substance: ESCITALOPRAM OXALATE
     Indication: Depression
     Dosage: 10 MG, QD
     Route: 048
     Dates: start: 20140410, end: 2015

REACTIONS (5)
  - Decreased activity [Unknown]
  - Feeding disorder [Unknown]
  - Rash pruritic [Unknown]
  - Sleep disorder [Unknown]
  - Skin abrasion [Unknown]
